FAERS Safety Report 5161151-X (Version None)
Quarter: 2006Q4

REPORT INFORMATION
  Report Type: 
  Country: None (occurrence: None)
  Receive Date: 20061130
  Receipt Date: 20060302
  Transmission Date: 20070319
  Serious: Yes (Hospitalization, Other)
  Sender: FDA-Public Use
  Company Number: US-ELI_LILLY_AND_COMPANY-US200603004762

PATIENT
  Age: 37 Year
  Sex: Male

DRUGS (2)
  1. LITHIUM CARBONATE [Concomitant]
     Dates: start: 19890701
  2. ZYPREXA [Suspect]
     Dosage: 10 MG, UNK

REACTIONS (7)
  - BILIARY TRACT DISORDER [None]
  - BLOOD CHOLESTEROL ABNORMAL [None]
  - CHOLECYSTECTOMY [None]
  - DIABETES MELLITUS [None]
  - GLYCOSURIA [None]
  - HEPATITIS VIRAL [None]
  - HYPERTENSION [None]
